FAERS Safety Report 12348608 (Version 1)
Quarter: 2016Q2

REPORT INFORMATION
  Report Type: Spontaneous
  Country: CH (occurrence: CH)
  Receive Date: 20160509
  Receipt Date: 20160509
  Transmission Date: 20160815
  Serious: Yes (Death, Other)
  Sender: FDA-Public Use
  Company Number: CH-PFIZER INC-2016243552

PATIENT
  Age: 42 Year
  Sex: Female

DRUGS (34)
  1. SOLU-MEDROL [Suspect]
     Active Substance: METHYLPREDNISOLONE SODIUM SUCCINATE
     Dates: start: 20160107, end: 20160111
  2. CYMEVEN /00784201/ [Suspect]
     Active Substance: GANCICLOVIR
     Dates: start: 20160107, end: 20160111
  3. ESOMEP /01479301/ [Concomitant]
  4. EPREX [Concomitant]
     Active Substance: ERYTHROPOIETIN
  5. CELLCEPT [Concomitant]
     Active Substance: MYCOPHENOLATE MOFETIL\MYCOPHENOLATE MOFETIL HYDROCHLORIDE
  6. SIMULECT [Concomitant]
     Active Substance: BASILIXIMAB
  7. TAZOBAC [Concomitant]
     Active Substance: PIPERACILLIN SODIUM\TAZOBACTAM SODIUM
  8. AMPHO-MORONAL [Concomitant]
     Active Substance: AMPHOTERICIN B
  9. KETALAR [Concomitant]
     Active Substance: KETAMINE HYDROCHLORIDE
  10. ATROVENT [Concomitant]
     Active Substance: IPRATROPIUM BROMIDE
  11. GASTROGRAFIN [Concomitant]
     Active Substance: DIATRIZOATE MEGLUMINE\DIATRIZOATE SODIUM
  12. MERONEM [Concomitant]
     Active Substance: MEROPENEM
  13. BACTRIM [Suspect]
     Active Substance: SULFAMETHOXAZOLE\TRIMETHOPRIM
     Dates: start: 20160107, end: 20160112
  14. TAVANIC [Suspect]
     Active Substance: LEVOFLOXACIN
     Dosage: UNK
     Dates: start: 20160108
  15. PERFALGAN [Concomitant]
     Active Substance: ACETAMINOPHEN
  16. TRANSIPEG /00754501/ [Concomitant]
     Active Substance: POLYETHYLENE GLYCOL 3350
  17. DEXDOR [Concomitant]
     Active Substance: DEXMEDETOMIDINE HYDROCHLORIDE
  18. DISOPRIVAN [Suspect]
     Active Substance: PROPOFOL
     Dates: start: 20160107, end: 20160117
  19. SANDIMMUN [Suspect]
     Active Substance: CYCLOSPORINE
     Dosage: UNK
     Dates: start: 20160107
  20. CANCIDAS [Concomitant]
     Active Substance: CASPOFUNGIN ACETATE
  21. FENTANYL. [Concomitant]
     Active Substance: FENTANYL
  22. ULTIVA [Concomitant]
     Active Substance: REMIFENTANIL HYDROCHLORIDE
  23. KONAKION [Concomitant]
     Active Substance: PHYTONADIONE
  24. LASIX [Concomitant]
     Active Substance: FUROSEMIDE
  25. SPORANOX [Suspect]
     Active Substance: ITRACONAZOLE
     Dosage: UNK
     Dates: start: 20160111
  26. NOVALGIN [Concomitant]
     Active Substance: METAMIZOLE SODIUM
  27. ILOMEDIN /00944802/ [Concomitant]
  28. HEPARIN [Concomitant]
     Active Substance: HEPARIN SODIUM
  29. VANCOCIN [Concomitant]
     Active Substance: VANCOMYCIN HYDROCHLORIDE
  30. MOTILIUM [Concomitant]
     Active Substance: DOMPERIDONE
  31. SUFENTANIL [Concomitant]
     Active Substance: SUFENTANIL
  32. DORMICUM /00634101/ [Concomitant]
     Active Substance: MIDAZOLAM\MIDAZOLAM HYDROCHLORIDE
  33. NORADRENALIN /00127501/ [Concomitant]
     Active Substance: NOREPINEPHRINE\NOREPINEPHRINE BITARTRATE
  34. METOLAZON [Concomitant]
     Active Substance: METOLAZONE

REACTIONS (2)
  - Anaemia [Fatal]
  - Blood creatine phosphokinase increased [Not Recovered/Not Resolved]

NARRATIVE: CASE EVENT DATE: 20160107
